FAERS Safety Report 7516848-0 (Version None)
Quarter: 2011Q2

REPORT INFORMATION
  Report Type: 
  Country: None (occurrence: None)
  Receive Date: 20110526
  Receipt Date: 20110526
  Transmission Date: 20111010
  Serious: Yes (Other)
  Sender: FDA-Public Use
  Company Number: None

PATIENT
  Age: 54 Year
  Sex: Male
  Weight: 91 kg

DRUGS (2)
  1. INVANZ [Suspect]
     Indication: PERITONITIS
     Dosage: 1GM  DAILY IV DRIP
     Route: 041
     Dates: start: 20110508, end: 20110508
  2. INVANZ [Suspect]
     Indication: APPENDICITIS PERFORATED
     Dosage: 1GM  DAILY IV DRIP
     Route: 041
     Dates: start: 20110508, end: 20110508

REACTIONS (4)
  - INFLUENZA LIKE ILLNESS [None]
  - PLATELET COUNT DECREASED [None]
  - HAEMOGLOBIN DECREASED [None]
  - BLOOD BILIRUBIN INCREASED [None]
